FAERS Safety Report 20133878 (Version 1)
Quarter: 2021Q4

REPORT INFORMATION
  Report Type: Spontaneous
  Country: US (occurrence: US)
  Receive Date: 20211201
  Receipt Date: 20211201
  Transmission Date: 20220304
  Serious: No
  Sender: FDA-Public Use
  Company Number: US-GLAXOSMITHKLINE-US2021245426

PATIENT
  Sex: Male

DRUGS (1)
  1. BREO ELLIPTA [Suspect]
     Active Substance: FLUTICASONE FUROATE\VILANTEROL TRIFENATATE
     Indication: Asthma
     Dosage: BREO ELLIPTA INHALER 200/25 30 INHAL
     Dates: start: 20210601

REACTIONS (3)
  - Nasopharyngitis [Not Recovered/Not Resolved]
  - Productive cough [Unknown]
  - Head discomfort [Unknown]
